FAERS Safety Report 21154661 (Version 3)
Quarter: 2022Q3

REPORT INFORMATION
  Report Type: Spontaneous
  Country: US (occurrence: US)
  Receive Date: 20220801
  Receipt Date: 20220921
  Transmission Date: 20221027
  Serious: No
  Sender: FDA-Public Use
  Company Number: US-PFIZER INC-2021612932

PATIENT
  Age: 17 Year
  Sex: Male

DRUGS (2)
  1. GENOTROPIN [Suspect]
     Active Substance: SOMATROPIN
     Indication: Growth hormone deficiency
     Dosage: 1.9 MG, DAILY
     Dates: start: 20200908
  2. GENOTROPIN [Suspect]
     Active Substance: SOMATROPIN
     Dosage: 0.8 DAILY

REACTIONS (3)
  - Device difficult to use [Unknown]
  - Poor quality device used [Unknown]
  - Drug dose omission by device [Unknown]
